FAERS Safety Report 4473006-4 (Version None)
Quarter: 2004Q4

REPORT INFORMATION
  Report Type: 
  Country: None (occurrence: None)
  Receive Date: 20041013
  Receipt Date: 20040820
  Transmission Date: 20050328
  Serious: Yes (Life-Threatening, Hospitalization, Other)
  Sender: FDA-Public Use
  Company Number: PHBS2004JP11012

PATIENT
  Age: 54 Year
  Sex: Female
  Weight: 50 kg

DRUGS (1)
  1. NEORAL [Suspect]
     Indication: STEM CELL TRANSPLANT
     Dosage: 40 MG/D
     Route: 048
     Dates: start: 20040513

REACTIONS (9)
  - APHASIA [None]
  - BLOOD PRESSURE INCREASED [None]
  - CEREBRAL HAEMORRHAGE [None]
  - GRAFT VERSUS HOST DISEASE [None]
  - LOSS OF CONSCIOUSNESS [None]
  - MUSCULAR WEAKNESS [None]
  - PARALYSIS [None]
  - PLATELET COUNT DECREASED [None]
  - VOMITING [None]
